FAERS Safety Report 23241539 (Version 2)
Quarter: 2023Q4

REPORT INFORMATION
  Report Type: Spontaneous
  Country: JP (occurrence: None)
  Receive Date: 20231129
  Receipt Date: 20231215
  Transmission Date: 20240110
  Serious: Yes (Other)
  Sender: FDA-Public Use
  Company Number: 2023A267967

PATIENT
  Age: 62 Year
  Sex: Male

DRUGS (2)
  1. ONDEXXYA [Suspect]
     Active Substance: ANDEXANET ALFA
     Indication: Subarachnoid haemorrhage
     Dosage: DOSE UNKNOWN
     Route: 042
     Dates: start: 20230411, end: 20230411
  2. RIVAROXABAN [Concomitant]
     Active Substance: RIVAROXABAN
     Indication: Cerebral infarction
     Dosage: DOSE UNKNOWN
     Route: 048
     Dates: start: 20230405

REACTIONS (3)
  - Coagulation time prolonged [Unknown]
  - Heparin resistance [Recovered/Resolved]
  - Cardiopulmonary failure [Recovered/Resolved]

NARRATIVE: CASE EVENT DATE: 20230101
